FAERS Safety Report 5865787-X (Version None)
Quarter: 2008Q3

REPORT INFORMATION
  Report Type: 
  Country: None (occurrence: None)
  Receive Date: 20080829
  Receipt Date: 20080828
  Transmission Date: 20090109
  Serious: Yes (Death, Other)
  Sender: FDA-Public Use
  Company Number: PHHY2008FI19486

PATIENT
  Sex: Male

DRUGS (9)
  1. EXELON [Suspect]
     Indication: DEMENTIA ALZHEIMER'S TYPE
     Dosage: 4.6 MG/24 HOUR
     Route: 062
     Dates: start: 20080301
  2. EXELON [Suspect]
     Dosage: 9.5 MG/24 HOUR
     Dates: start: 20080501
  3. RISPERDAL [Concomitant]
  4. THYROXIN [Concomitant]
  5. COZAAR [Concomitant]
  6. ACETYLSALICYLIC ACID SRT [Concomitant]
  7. ACETAMINOPHEN [Concomitant]
     Indication: PAIN
     Dosage: WHEN NEEDED
  8. VENTOLIN [Concomitant]
     Dosage: WHEN NEEDED
  9. GALANTAMINE HYDROBROMIDE [Concomitant]

REACTIONS (4)
  - APPLICATION SITE RASH [None]
  - BLISTER [None]
  - DEATH [None]
  - URTICARIA [None]
